FAERS Safety Report 9191095 (Version 4)
Quarter: 2013Q2

REPORT INFORMATION
  Report Type: Spontaneous
  Country: JP (occurrence: JP)
  Receive Date: 20130326
  Receipt Date: 20130606
  Transmission Date: 20140414
  Serious: Yes (Death, Hospitalization, Other)
  Sender: FDA-Public Use
  Company Number: JP-ABBOTT-13P-087-1068022-00

PATIENT
  Age: 68 Year
  Sex: Female
  Weight: 35 kg

DRUGS (12)
  1. HUMIRA [Suspect]
     Indication: RHEUMATOID ARTHRITIS
     Route: 058
     Dates: start: 200907, end: 20130107
  2. PREGABALIN [Concomitant]
     Indication: RHEUMATOID ARTHRITIS
     Route: 048
     Dates: start: 20120731, end: 20130111
  3. REBAMIPIDE [Concomitant]
     Indication: PROPHYLAXIS
     Route: 048
     Dates: start: 20120412, end: 20130111
  4. CALCIUM L-ASPARTATE [Concomitant]
     Indication: OSTEOPOROSIS
     Route: 048
     Dates: start: 20110412, end: 20130111
  5. ALFACALCIDOL [Concomitant]
     Indication: OSTEOPOROSIS
     Route: 048
     Dates: start: 20110412, end: 20130111
  6. PREDNISOLONE [Concomitant]
     Indication: RHEUMATOID ARTHRITIS
     Route: 048
     Dates: start: 20110412, end: 20130111
  7. PREDNISOLONE [Concomitant]
     Route: 048
     Dates: start: 20130119, end: 20130125
  8. ESTAZOLAM [Concomitant]
     Indication: INSOMNIA
     Route: 048
     Dates: start: 20110412, end: 20130111
  9. LANSOPRAZOLE [Concomitant]
     Indication: PROPHYLAXIS
     Route: 048
     Dates: start: 20110412, end: 20130111
  10. METHOTREXATE [Concomitant]
     Indication: RHEUMATOID ARTHRITIS
     Route: 048
     Dates: start: 20110411, end: 20130111
  11. SENNOSIDE [Concomitant]
     Indication: CONSTIPATION
     Route: 048
  12. PREDNISOLONE SODIUM SUCCINATE [Concomitant]
     Indication: RHEUMATOID ARTHRITIS
     Route: 042
     Dates: start: 20130118, end: 20130118

REACTIONS (13)
  - Asphyxia [Fatal]
  - Aspiration [Fatal]
  - Muscular weakness [Fatal]
  - Muscular weakness [Not Recovered/Not Resolved]
  - Spinal osteoarthritis [Not Recovered/Not Resolved]
  - Malaise [Not Recovered/Not Resolved]
  - Adrenocortical insufficiency acute [Not Recovered/Not Resolved]
  - Asthenia [Not Recovered/Not Resolved]
  - Pneumonia [Not Recovered/Not Resolved]
  - Rheumatoid lung [Not Recovered/Not Resolved]
  - Osteoporosis [Not Recovered/Not Resolved]
  - Disuse syndrome [Not Recovered/Not Resolved]
  - Abasia [Not Recovered/Not Resolved]
